FAERS Safety Report 8950271 (Version 1)
Quarter: 2012Q4

REPORT INFORMATION
  Report Type: 
  Country: CN (occurrence: CN)
  Receive Date: 20121205
  Receipt Date: 20121205
  Transmission Date: 20130627
  Serious: Yes (Hospitalization, Other)
  Sender: FDA-Public Use
  Company Number: PHHY2012CN109384

PATIENT
  Age: 33 None
  Sex: Male

DRUGS (1)
  1. SEBIVO [Suspect]
     Indication: HEPATITIS B
     Dosage: 600 mg, once daily
     Route: 048
     Dates: start: 20110825, end: 20111125

REACTIONS (11)
  - Renal failure chronic [Recovering/Resolving]
  - Lung infection [Recovering/Resolving]
  - Cough [Unknown]
  - Decreased appetite [Unknown]
  - Sputum discoloured [Unknown]
  - Nasopharyngitis [Unknown]
  - Insomnia [Unknown]
  - Asthenia [Not Recovered/Not Resolved]
  - Blood creatine phosphokinase increased [Recovering/Resolving]
  - Myalgia [Recovering/Resolving]
  - Muscular weakness [Recovering/Resolving]
